FAERS Safety Report 8532779 (Version 5)
Quarter: 2016Q1

REPORT INFORMATION
  Report Type: Report from Study
  Country: BR (occurrence: BR)
  Receive Date: 20120426
  Receipt Date: 20160318
  Transmission Date: 20160526
  Serious: Yes (Hospitalization, Other)
  Sender: FDA-Public Use
  Company Number: BR-ROCHE-1061114

PATIENT
  Sex: Female
  Weight: 64 kg

DRUGS (10)
  1. DEFLAZACORT [Concomitant]
     Active Substance: DEFLAZACORT
     Route: 065
  2. PURAN [Concomitant]
     Active Substance: LEVOTHYROXINE SODIUM
  3. DIPYRONE [Concomitant]
     Active Substance: DIPYRONE
     Indication: PAIN
  4. LIPITOR [Concomitant]
     Active Substance: ATORVASTATIN CALCIUM
  5. INDAPAMIDE. [Concomitant]
     Active Substance: INDAPAMIDE
     Indication: HYPERTENSION
     Route: 065
  6. ACTEMRA [Suspect]
     Active Substance: TOCILIZUMAB
     Indication: RHEUMATOID ARTHRITIS
     Route: 065
     Dates: start: 20101001, end: 201203
  7. ACTEMRA [Suspect]
     Active Substance: TOCILIZUMAB
     Dosage: LATEST INFUSION WAS PERFORMED ON 25-OCT-2013
     Route: 065
  8. OMEPRAZOL [Concomitant]
     Active Substance: OMEPRAZOLE
     Route: 065
  9. SYNTHROID [Concomitant]
     Active Substance: LEVOTHYROXINE SODIUM
     Route: 065
  10. PROFENID [Concomitant]
     Active Substance: KETOPROFEN

REACTIONS (10)
  - Fall [Unknown]
  - Pancreatitis [Recovered/Resolved]
  - White blood cell count decreased [Recovered/Resolved]
  - Nasopharyngitis [Unknown]
  - Blood cholesterol increased [Unknown]
  - Osteopenia [Unknown]
  - Immunodeficiency [Recovered/Resolved]
  - Gallbladder injury [Recovered/Resolved]
  - Femur fracture [Recovering/Resolving]
  - Hepatitis [Recovered/Resolved]
